FAERS Safety Report 19738465 (Version 1)
Quarter: 2021Q3

REPORT INFORMATION
  Report Type: Spontaneous
  Country: US (occurrence: US)
  Receive Date: 20210823
  Receipt Date: 20210823
  Transmission Date: 20211014
  Serious: Yes (Hospitalization, Other)
  Sender: FDA-Public Use
  Company Number: None

PATIENT
  Age: 36 Year
  Sex: Female
  Weight: 63.5 kg

DRUGS (2)
  1. REGEN?COV [Suspect]
     Active Substance: CASIRIVIMAB\IMDEVIMAB
     Indication: COVID-19
     Route: 041
  2. LEVOTHYROXINE. [Concomitant]
     Active Substance: LEVOTHYROXINE
     Dates: start: 20210208

REACTIONS (6)
  - Tachypnoea [None]
  - Foetal heart rate deceleration abnormality [None]
  - Maternal drugs affecting foetus [None]
  - Myalgia [None]
  - Infusion related reaction [None]
  - Tremor [None]

NARRATIVE: CASE EVENT DATE: 20210820
